FAERS Safety Report 22050273 (Version 1)
Quarter: 2023Q1

REPORT INFORMATION
  Report Type: Spontaneous
  Country: JP (occurrence: JP)
  Receive Date: 20230301
  Receipt Date: 20230301
  Transmission Date: 20230418
  Serious: Yes (Other)
  Sender: FDA-Public Use
  Company Number: JP-BRISTOL-MYERS SQUIBB COMPANY-2023-028363

PATIENT
  Age: 71 Year
  Sex: Female

DRUGS (10)
  1. REVLIMID [Suspect]
     Active Substance: LENALIDOMIDE
     Indication: Plasma cell myeloma
     Dates: start: 2019
  2. REVLIMID [Suspect]
     Active Substance: LENALIDOMIDE
     Dosage: 10MG/D
     Dates: start: 201907, end: 202104
  3. LENADEX [Suspect]
     Active Substance: DEXAMETHASONE ACETATE
     Indication: Plasma cell myeloma
     Dates: start: 2019
  4. LENADEX [Suspect]
     Active Substance: DEXAMETHASONE ACETATE
     Indication: Plasma cell myeloma recurrent
     Dates: start: 202102
  5. LENADEX [Suspect]
     Active Substance: DEXAMETHASONE ACETATE
     Dates: start: 20210614
  6. KYPROLIS [Suspect]
     Active Substance: CARFILZOMIB
     Indication: Plasma cell myeloma recurrent
     Dates: start: 202102
  7. KYPROLIS [Suspect]
     Active Substance: CARFILZOMIB
     Dates: start: 20210614
  8. VELCADE [Suspect]
     Active Substance: BORTEZOMIB
     Indication: Plasma cell myeloma
     Dates: start: 2019
  9. DARZALEX [Suspect]
     Active Substance: DARATUMUMAB
     Indication: Plasma cell myeloma recurrent
     Dates: start: 202102
  10. DARZALEX [Suspect]
     Active Substance: DARATUMUMAB
     Dates: start: 20210614

REACTIONS (3)
  - Plasma cell myeloma recurrent [Recovering/Resolving]
  - Blood pressure inadequately controlled [Recovered/Resolved]
  - Posterior reversible encephalopathy syndrome [Unknown]

NARRATIVE: CASE EVENT DATE: 20210201
